FAERS Safety Report 7178832-9 (Version None)
Quarter: 2010Q4

REPORT INFORMATION
  Report Type: 
  Country: None (occurrence: None)
  Receive Date: 20101221
  Receipt Date: 20101213
  Transmission Date: 20110411
  Serious: Yes (Hospitalization)
  Sender: FDA-Public Use
  Company Number: US-JNJFOC-20101205322

PATIENT
  Sex: Male
  Weight: 92.53 kg

DRUGS (10)
  1. FENTANYL-100 [Suspect]
     Indication: THROMBOSIS
     Dosage: NDC 0781-7242-55.
     Route: 062
  2. FENTANYL-100 [Suspect]
     Route: 062
  3. FENTANYL-100 [Suspect]
     Indication: THROMBOSIS
     Route: 062
  4. PERCOCET [Concomitant]
     Indication: BREAKTHROUGH PAIN
     Dosage: AS NEEDED.
     Route: 048
  5. ASPIRIN [Concomitant]
     Indication: THROMBOSIS
     Route: 048
  6. NEURONTIN [Concomitant]
     Indication: BIPOLAR DISORDER
     Route: 048
  7. LAMICTAL [Concomitant]
     Indication: ANTIDEPRESSANT THERAPY
     Route: 048
  8. ADDERALL 10 [Concomitant]
     Indication: ANXIETY
     Route: 048
  9. COUMADIN [Concomitant]
     Indication: THROMBOSIS
     Route: 048
  10. BENZTROPINE MESYLATE [Concomitant]
     Indication: DYSKINESIA
     Route: 048

REACTIONS (7)
  - DRUG INEFFECTIVE [None]
  - HOSPITALISATION [None]
  - OFF LABEL USE [None]
  - PAIN OF SKIN [None]
  - PARAESTHESIA [None]
  - PRODUCT ADHESION ISSUE [None]
  - WRONG TECHNIQUE IN DRUG USAGE PROCESS [None]
